FAERS Safety Report 4281077-3 (Version None)
Quarter: 2004Q1

REPORT INFORMATION
  Report Type: 
  Country: None (occurrence: None)
  Receive Date: 20040123
  Receipt Date: 20030807
  Transmission Date: 20041129
  Serious: Yes (Other)
  Sender: FDA-Public Use
  Company Number: HQWYE042512AUG03

PATIENT
  Age: 69 Year
  Sex: Male
  Weight: 95.34 kg

DRUGS (4)
  1. CORDARONE [Suspect]
     Indication: ATRIAL FIBRILLATION
     Dosage: 400 MG 2X PER 1 DAY, ORAL
     Route: 048
     Dates: start: 20030201, end: 20030801
  2. BUMEX [Concomitant]
  3. POTASSIUM (POTASSIUM) [Concomitant]
  4. DEMADEX [Concomitant]

REACTIONS (1)
  - PULMONARY TOXICITY [None]
